FAERS Safety Report 4811105-5 (Version None)
Quarter: 2005Q4

REPORT INFORMATION
  Report Type: 
  Country: None (occurrence: None)
  Receive Date: 20051027
  Receipt Date: 20051017
  Transmission Date: 20060501
  Serious: Yes (Hospitalization)
  Sender: FDA-Public Use
  Company Number: GB-GILEAD-2005-0008819

PATIENT
  Age: 57 Year
  Sex: Male

DRUGS (3)
  1. EMTRIVA [Suspect]
     Dates: start: 20050801, end: 20051006
  2. TRUVADA [Suspect]
     Route: 048
     Dates: start: 20050801, end: 20051006
  3. EFAVIRENZ [Suspect]
     Route: 048
     Dates: start: 20050801, end: 20051001

REACTIONS (7)
  - ABNORMAL BEHAVIOUR [None]
  - AGGRESSION [None]
  - AGITATION [None]
  - DRUG ADMINISTRATION ERROR [None]
  - EUPHORIC MOOD [None]
  - HYPOMANIA [None]
  - PRESSURE OF SPEECH [None]
